FAERS Safety Report 23588885 (Version 1)
Quarter: 2024Q1

REPORT INFORMATION
  Report Type: Other
  Country: DE (occurrence: DE)
  Receive Date: 20240303
  Receipt Date: 20240303
  Transmission Date: 20240409
  Serious: Yes (Other)
  Sender: FDA-Public Use
  Company Number: DE-LUNDBECK-DKLU3070697

PATIENT

DRUGS (30)
  1. SILDENAFIL [Interacting]
     Active Substance: SILDENAFIL
     Indication: Product used for unknown indication
     Dosage: UNK
     Route: 065
  2. CANDESARTAN [Interacting]
     Active Substance: CANDESARTAN
     Indication: Hypertension
     Dosage: 8 MG, QD (MORNING)
     Route: 065
  3. CANDESARTAN [Interacting]
     Active Substance: CANDESARTAN
     Dosage: 4 MG, QD (AFTERNOON)
     Route: 065
  4. NAPROXEN [Interacting]
     Active Substance: NAPROXEN
     Indication: Arthralgia
     Dosage: 500 MG, PRN
     Route: 065
  5. NAPROXEN [Interacting]
     Active Substance: NAPROXEN
     Indication: Anxiety
  6. MELATONIN [Interacting]
     Active Substance: MELATONIN
     Indication: Product used for unknown indication
     Dosage: UNK
     Route: 065
  7. RAMIPRIL [Interacting]
     Active Substance: RAMIPRIL
     Indication: Hypertension
     Dosage: UNK
     Route: 065
  8. ISOPROMETHAZINE HYDROCHLORIDE [Interacting]
     Active Substance: ISOPROMETHAZINE HYDROCHLORIDE
     Indication: Product used for unknown indication
     Dosage: 37.5 MG
     Route: 065
  9. ISOPROMETHAZINE HYDROCHLORIDE [Interacting]
     Active Substance: ISOPROMETHAZINE HYDROCHLORIDE
     Dosage: 25 MG
     Route: 065
  10. ZYPREXA [Interacting]
     Active Substance: OLANZAPINE
     Indication: Product used for unknown indication
     Dosage: UNK
     Route: 065
  11. TAVOR (LORAZEPAM) [Interacting]
     Active Substance: LORAZEPAM
     Indication: Sedation
     Dosage: 1 MG, PRN
     Route: 065
  12. TAVOR (LORAZEPAM) [Interacting]
     Active Substance: LORAZEPAM
     Indication: Anxiety
  13. BROMAZEPAM [Interacting]
     Active Substance: BROMAZEPAM
     Indication: Anxiety
     Dosage: 3 MG, PRN
     Route: 065
  14. BROMAZEPAM [Interacting]
     Active Substance: BROMAZEPAM
     Indication: Sedation
  15. CARIPRAZINE [Interacting]
     Active Substance: CARIPRAZINE
     Indication: Product used for unknown indication
     Dosage: UNK
     Route: 065
  16. FLUPENTIXOL [Interacting]
     Active Substance: FLUPENTIXOL
     Indication: Psychotic disorder
     Dosage: 5 MG, QD (MORNING)
     Route: 065
  17. FLUPENTIXOL [Interacting]
     Active Substance: FLUPENTIXOL
     Dosage: 5 MG, QD (EVENING)
     Route: 065
  18. FLUPENTIXOL [Interacting]
     Active Substance: FLUPENTIXOL
     Dosage: 5 MG, QD (NIGHT)
     Route: 065
  19. RABEPRAZOLE [Interacting]
     Active Substance: RABEPRAZOLE
     Indication: Gastric pH increased
     Dosage: 20 MG, QD (MORNING)
     Route: 065
  20. PROPRANOLOL [Interacting]
     Active Substance: PROPRANOLOL HYDROCHLORIDE
     Indication: Tremor
     Dosage: UNK
     Route: 065
  21. SEROQUEL [Interacting]
     Active Substance: QUETIAPINE FUMARATE
     Indication: Insomnia
     Dosage: 100 MG, QD (BEDTIME FOR SLEEP )
     Route: 065
  22. SEROQUEL [Interacting]
     Active Substance: QUETIAPINE FUMARATE
     Indication: Sedation
     Dosage: 25-50MG IF NECESSARY TO CALM DOWN
     Route: 065
  23. ZELDOX [Interacting]
     Active Substance: ZIPRASIDONE
     Indication: Product used for unknown indication
     Dosage: UNK
     Route: 065
  24. ABILIFY [Interacting]
     Active Substance: ARIPIPRAZOLE
     Indication: Product used for unknown indication
     Dosage: UNK
     Route: 065
  25. CLOZAPINE [Interacting]
     Active Substance: CLOZAPINE
     Indication: Product used for unknown indication
     Dosage: UNK
     Route: 065
  26. CHLORPROTHIXENE [Interacting]
     Active Substance: CHLORPROTHIXENE
     Indication: Insomnia
     Dosage: 100 MG, QD (BEDTIME FOR SLEEP)
     Route: 065
  27. NEBIVOLOL [Interacting]
     Active Substance: NEBIVOLOL
     Indication: Hypertension
     Dosage: 2.5 MG, BID (MORNING AND NIGHT )
     Route: 065
  28. RISPERDAL [Interacting]
     Active Substance: RISPERIDONE
     Indication: Psychotic disorder
     Dosage: 2 MG
     Route: 065
  29. RISPERDAL [Interacting]
     Active Substance: RISPERIDONE
     Dosage: 4 MG (MORNING)
     Route: 065
  30. RISPERDAL [Interacting]
     Active Substance: RISPERIDONE
     Dosage: 4 MG (NIGHT)
     Route: 065

REACTIONS (11)
  - Suicidal ideation [Unknown]
  - Condition aggravated [Unknown]
  - Brain fog [Unknown]
  - Flatulence [Unknown]
  - Impaired work ability [Unknown]
  - Dizziness [Unknown]
  - Somnolence [Unknown]
  - Tremor [Unknown]
  - Blood pressure increased [Unknown]
  - Parkinsonism [Unknown]
  - Drug interaction [Unknown]
